FAERS Safety Report 13231295 (Version 1)
Quarter: 2017Q1

REPORT INFORMATION
  Report Type: Spontaneous
  Country: DE (occurrence: DE)
  Receive Date: 20170214
  Receipt Date: 20170214
  Transmission Date: 20170428
  Serious: Yes (Hospitalization)
  Sender: FDA-Public Use
  Company Number: DE-JNJFOC-20170210915

PATIENT
  Age: 69 Year
  Sex: Female
  Weight: 58 kg

DRUGS (6)
  1. FOLICOMBIN [Concomitant]
     Route: 065
  2. FUROSEMIDE. [Concomitant]
     Active Substance: FUROSEMIDE
     Route: 065
  3. OXYCODONE [Concomitant]
     Active Substance: OXYCODONE
     Route: 065
     Dates: start: 20170111, end: 20170124
  4. XARELTO [Suspect]
     Active Substance: RIVAROXABAN
     Indication: PULMONARY EMBOLISM
     Route: 048
     Dates: start: 20170117, end: 20170118
  5. RANTUDIL [Concomitant]
     Active Substance: ACEMETACIN
     Indication: ANALGESIC THERAPY
     Route: 048
     Dates: start: 20170111, end: 20170124
  6. NOVALGIN [Concomitant]
     Active Substance: METAMIZOLE SODIUM
     Route: 065

REACTIONS (2)
  - Muscle haemorrhage [Recovering/Resolving]
  - Blood product transfusion dependent [Recovering/Resolving]

NARRATIVE: CASE EVENT DATE: 20170118
